FAERS Safety Report 9726707 (Version 1)
Quarter: 2013Q4

REPORT INFORMATION
  Report Type: Spontaneous
  Country: US (occurrence: None)
  Receive Date: 20131202
  Receipt Date: 20131202
  Transmission Date: 20140711
  Serious: Yes (Death)
  Sender: FDA-Public Use
  Company Number: None

PATIENT
  Age: 64 Year
  Sex: Male

DRUGS (2)
  1. XELODA 500 MG [Suspect]
     Indication: PANCREATIC CARCINOMA
     Route: 048
     Dates: start: 20131103
  2. XELODA 150 MG [Suspect]
     Dosage: 1T M-F
     Route: 048

REACTIONS (1)
  - Death [None]
